FAERS Safety Report 7795414-6 (Version None)
Quarter: 2011Q4

REPORT INFORMATION
  Report Type: 
  Country: None (occurrence: None)
  Receive Date: 20111004
  Receipt Date: 20110927
  Transmission Date: 20120403
  Serious: Yes (Death, Hospitalization)
  Sender: FDA-Public Use
  Company Number: MX-SANOFI-AVENTIS-2011SA063540

PATIENT
  Age: 74 Year
  Sex: Male

DRUGS (3)
  1. SHORANT [Suspect]
     Indication: TYPE 2 DIABETES MELLITUS
     Route: 058
     Dates: start: 20090101, end: 20110224
  2. AMANTADINE HCL [Concomitant]
     Indication: PARKINSON'S DISEASE
     Route: 048
     Dates: start: 20060101, end: 20110224
  3. INSULIN GLARGINE [Suspect]
     Indication: TYPE 2 DIABETES MELLITUS
     Route: 058
     Dates: start: 20060101, end: 20110224

REACTIONS (5)
  - ARRHYTHMIA [None]
  - CHEST PAIN [None]
  - HYPERHIDROSIS [None]
  - PNEUMONIA [None]
  - SYNCOPE [None]
